FAERS Safety Report 4519093-6 (Version None)
Quarter: 2004Q4

REPORT INFORMATION
  Report Type: 
  Country: None (occurrence: None)
  Receive Date: 20041206
  Receipt Date: 20041117
  Transmission Date: 20050328
  Serious: Yes (Death, Other)
  Sender: FDA-Public Use
  Company Number: JP-BRISTOL-MYERS SQUIBB COMPANY-12768743

PATIENT
  Age: 84 Year
  Sex: Male

DRUGS (9)
  1. TAXOL [Suspect]
     Indication: LUNG ADENOCARCINOMA
     Dosage: START DATE:  07-OCT-2004, 14-OCT-2004
     Route: 041
     Dates: start: 20041007, end: 20041021
  2. ALUMINUM HYDROXIDE GEL [Concomitant]
     Route: 048
  3. ULCERLMIN [Concomitant]
     Route: 048
  4. CABAGIN [Concomitant]
     Dosage: -UO
     Route: 048
  5. ZYLORIC [Concomitant]
     Route: 048
  6. SUNRYTHM [Concomitant]
     Route: 048
  7. MAGNESIUM OXIDE [Concomitant]
     Route: 048
  8. FORSENID [Concomitant]
     Route: 048
  9. VENA [Concomitant]
     Route: 048

REACTIONS (3)
  - INTERSTITIAL LUNG DISEASE [None]
  - LUNG ADENOCARCINOMA [None]
  - RESPIRATORY FAILURE [None]
